FAERS Safety Report 11392842 (Version 1)
Quarter: 2015Q3

REPORT INFORMATION
  Report Type: Spontaneous
  Country: US (occurrence: US)
  Receive Date: 20150818
  Receipt Date: 20150818
  Transmission Date: 20151125
  Serious: Yes (Hospitalization)
  Sender: FDA-Public Use
  Company Number: US-INCYTE CORPORATION-2015IN003964

PATIENT
  Age: 50 Year
  Sex: Female

DRUGS (7)
  1. TRAMADOL. [Concomitant]
     Active Substance: TRAMADOL
  2. DILTIAZEM [Concomitant]
     Active Substance: DILTIAZEM
  3. HYDREA [Concomitant]
     Active Substance: HYDROXYUREA
  4. TYLENOL [Concomitant]
     Active Substance: ACETAMINOPHEN
  5. ASPIRIN. [Concomitant]
     Active Substance: ASPIRIN
  6. VITAMIN D                          /00107901/ [Concomitant]
     Active Substance: ERGOCALCIFEROL
  7. JAKAFI [Suspect]
     Active Substance: RUXOLITINIB
     Dosage: 25 MG, BID
     Route: 048

REACTIONS (2)
  - Drug dose omission [Unknown]
  - Cystitis [Recovering/Resolving]

NARRATIVE: CASE EVENT DATE: 20150731
